FAERS Safety Report 15356347 (Version 1)
Quarter: 2018Q3

REPORT INFORMATION
  Report Type: Spontaneous
  Country: US (occurrence: US)
  Receive Date: 20180906
  Receipt Date: 20180906
  Transmission Date: 20181010
  Serious: Yes (Other)
  Sender: FDA-Public Use
  Company Number: US-TEVA-2018-US-952379

PATIENT
  Sex: Female

DRUGS (2)
  1. FENTORA [Suspect]
     Active Substance: FENTANYL CITRATE
     Route: 065
  2. ACTIQ [Suspect]
     Active Substance: FENTANYL CITRATE
     Route: 065

REACTIONS (2)
  - Drug dependence [Unknown]
  - Maternal exposure during pregnancy [Unknown]
